FAERS Safety Report 12218833 (Version 1)
Quarter: 2016Q1

REPORT INFORMATION
  Report Type: Spontaneous
  Country: FR (occurrence: FR)
  Receive Date: 20160329
  Receipt Date: 20160329
  Transmission Date: 20160526
  Serious: Yes (Other)
  Sender: FDA-Public Use
  Company Number: FR-SA-2016SA056961

PATIENT
  Age: 89 Year
  Sex: Female

DRUGS (6)
  1. LASILIX [Suspect]
     Active Substance: FUROSEMIDE
     Indication: VASODILATATION
     Route: 048
     Dates: start: 20160120, end: 20160125
  2. DAFALGAN [Concomitant]
     Active Substance: ACETAMINOPHEN
     Route: 048
     Dates: start: 20160112
  3. CEFTRIAXONE SODIUM. [Concomitant]
     Active Substance: CEFTRIAXONE SODIUM
     Route: 048
     Dates: start: 20160114, end: 20160123
  4. MOVICOL [Concomitant]
     Active Substance: POLYETHYLENE GLYCOL 3350\POTASSIUM CHLORIDE\SODIUM BICARBONATE\SODIUM CHLORIDE
     Dosage: DOSE: 1 (UNITS NOT REPORTED)
     Route: 048
     Dates: start: 20160112
  5. KARDEGIC [Concomitant]
     Active Substance: ASPIRIN LYSINE
     Dosage: STRENGTH: 75 MG
     Route: 048
  6. ATORVASTATIN [Concomitant]
     Active Substance: ATORVASTATIN
     Route: 048

REACTIONS (4)
  - Fall [Unknown]
  - Hypotension [Recovered/Resolved]
  - Wound haematoma [Recovered/Resolved]
  - Craniocerebral injury [Recovered/Resolved]

NARRATIVE: CASE EVENT DATE: 20160125
